FAERS Safety Report 18788833 (Version 1)
Quarter: 2021Q1

REPORT INFORMATION
  Report Type: Spontaneous
  Country: GB (occurrence: GB)
  Receive Date: 20210126
  Receipt Date: 20210126
  Transmission Date: 20210419
  Serious: Yes (Death, Hospitalization, Other)
  Sender: FDA-Public Use
  Company Number: GB-PFIZER INC-2020191565

PATIENT
  Age: 54 Year
  Sex: Female
  Weight: 74 kg

DRUGS (37)
  1. AZITHROMYCIN ANHYDROUS. [Interacting]
     Active Substance: AZITHROMYCIN ANHYDROUS
     Dosage: 500 MG, 1X/DAY
     Route: 048
     Dates: start: 20200130
  2. CEFTAZIDIME. [Interacting]
     Active Substance: CEFTAZIDIME
     Dosage: 2.5 G, 3X/DAY
  3. CETIRIZINE [Concomitant]
     Active Substance: CETIRIZINE HYDROCHLORIDE
     Dosage: 10 MG, 1X/DAY (EACH MORNING)
  4. ADOPORT [Concomitant]
     Active Substance: TACROLIMUS
     Dosage: UNK MG
  5. ONDANSETRON HYDROCHLORIDE. [Concomitant]
     Active Substance: ONDANSETRON HYDROCHLORIDE
     Dosage: UNK
  6. LEVOMEPROMAZINE [Concomitant]
     Active Substance: LEVOMEPROMAZINE
     Dosage: UNK
  7. TIGECYCLINE. [Interacting]
     Active Substance: TIGECYCLINE
     Indication: MYCOBACTERIAL INFECTION
  8. AVIBACTAM [Interacting]
     Active Substance: AVIBACTAM
     Dosage: 2.5 G, 3X/DAY
  9. PARACETAMOL [Concomitant]
     Active Substance: ACETAMINOPHEN
     Dosage: 1 G, 4X/DAY
  10. MORPHINE SULFATE. [Concomitant]
     Active Substance: MORPHINE SULFATE
     Dosage: UNK
  11. TACROLIMUS. [Concomitant]
     Active Substance: TACROLIMUS
     Dosage: UNK
  12. PREDNISONE. [Concomitant]
     Active Substance: PREDNISONE
     Dosage: 15 MG, 1X/DAY
  13. GABAPENTIN. [Concomitant]
     Active Substance: GABAPENTIN
     Dosage: 300 MG, 2X/DAY
  14. DOSULEPIN HYDROCHLORIDE [Concomitant]
     Active Substance: DOTHIEPIN HYDROCHLORIDE
     Indication: DEPRESSION
     Dosage: 150 MG, 1X/DAY
  15. OMEPRAZOLE. [Concomitant]
     Active Substance: OMEPRAZOLE
     Dosage: 40 MG, 2X/DAY
  16. AVIBACTAM [Interacting]
     Active Substance: AVIBACTAM
     Dosage: 1.5 G, 3X/DAY
     Dates: start: 20200131
  17. CALCICHEW D3 [Concomitant]
     Active Substance: CALCIUM\CHOLECALCIFEROL
     Dosage: TBD
  18. ADOPORT [Concomitant]
     Active Substance: TACROLIMUS
     Dosage: 6 MG, 1X/DAY
  19. PRAVASTATIN. [Concomitant]
     Active Substance: PRAVASTATIN
     Dosage: 40 MG, 1X/DAY (EACH NIGHT)
  20. MEROPENEM. [Interacting]
     Active Substance: MEROPENEM
     Dosage: 2 G, 3X/DAY
  21. AZITHROMYCIN ANHYDROUS. [Interacting]
     Active Substance: AZITHROMYCIN ANHYDROUS
     Dosage: 500 MG, 1X/DAY
     Route: 042
  22. COTRIMOXAZOLE [Concomitant]
     Active Substance: SULFAMETHOXAZOLE\TRIMETHOPRIM
     Dosage: 480 MG, 1X/DAY
  23. DOSULEPIN HYDROCHLORIDE [Concomitant]
     Active Substance: DOTHIEPIN HYDROCHLORIDE
     Dosage: 75 MG, 1X/DAY (REDUCED TO 75MG OD ON ADMISSION)
  24. CHLORPHENAMINE [Concomitant]
     Active Substance: CHLORPHENIRAMINE MALEATE
     Dosage: UNK
  25. PREDNISONE. [Concomitant]
     Active Substance: PREDNISONE
     Dosage: 10 MG, 1X/DAY
  26. LORAZEPAM. [Concomitant]
     Active Substance: LORAZEPAM
     Dosage: UNK
  27. RAMIPRIL. [Concomitant]
     Active Substance: RAMIPRIL
     Dosage: UNK
  28. MEROPENEM. [Interacting]
     Active Substance: MEROPENEM
     Dosage: 2 G, 2X/DAY
     Dates: start: 20200131
  29. CEFTAZIDIME. [Interacting]
     Active Substance: CEFTAZIDIME
     Dosage: 1.5 G, 3X/DAY
     Dates: start: 20200131
  30. CALCICHEW D3 [Concomitant]
     Active Substance: CALCIUM\CHOLECALCIFEROL
     Dosage: TBD
  31. VALGANCICLOVIR. [Concomitant]
     Active Substance: VALGANCICLOVIR
     Dosage: 450 MG, ALTERNATE DAY
  32. TINZAPARIN SODIUM [Concomitant]
     Active Substance: TINZAPARIN SODIUM
     Dosage: UNK
  33. NYSTATIN. [Concomitant]
     Active Substance: NYSTATIN
     Dosage: UNK
  34. OMEPRAZOLE SODIUM [Concomitant]
     Active Substance: OMEPRAZOLE SODIUM
     Dosage: UNK
  35. TIGECYCLINE. [Suspect]
     Active Substance: TIGECYCLINE
     Indication: LUNG ABSCESS
     Dosage: 100 MG, ONCE A DAY
     Route: 042
     Dates: start: 20200125, end: 20200205
  36. RANITIDINE. [Concomitant]
     Active Substance: RANITIDINE
     Dosage: 300 MG, 2X/DAY
  37. PREDNISOLON AL [Concomitant]
     Active Substance: PREDNISOLONE
     Dosage: UNK

REACTIONS (8)
  - Cardiac arrest [Fatal]
  - Drug interaction [Unknown]
  - Off label use [Unknown]
  - Pancreatitis acute [Fatal]
  - Nausea [Not Recovered/Not Resolved]
  - Pulseless electrical activity [Fatal]
  - Abdominal pain [Not Recovered/Not Resolved]
  - Abdominal pain upper [Not Recovered/Not Resolved]

NARRATIVE: CASE EVENT DATE: 20200125
